FAERS Safety Report 5814594-2 (Version None)
Quarter: 2008Q3

REPORT INFORMATION
  Report Type: 
  Country: None (occurrence: None)
  Receive Date: 20080718
  Receipt Date: 20071108
  Transmission Date: 20090109
  Serious: No
  Sender: FDA-Public Use
  Company Number: US-KINGPHARMUSA00001-K200701447

PATIENT

DRUGS (14)
  1. LEVOXYL [Suspect]
     Dosage: 50 MCG, QD
     Route: 048
     Dates: start: 20000101, end: 20030101
  2. LEVOXYL [Suspect]
     Dosage: 100 MCG, QD
     Route: 048
     Dates: start: 20030101
  3. ALLEGRA [Concomitant]
     Indication: HYPERSENSITIVITY
     Dosage: 180 MG, QD
     Route: 048
  4. NASACORT AQ [Concomitant]
     Indication: HYPERSENSITIVITY
     Dosage: UNK, QD
     Route: 045
  5. ASTELIN                            /00884002/ [Concomitant]
     Indication: HYPERSENSITIVITY
     Dosage: UNK, BID
     Route: 045
  6. IPRATROPIUM BROMIDE [Concomitant]
     Indication: NASAL CONGESTION
     Dosage: UNK, PRN
  7. BENICAR [Concomitant]
  8. LOVAZA [Concomitant]
  9. EVISTA [Concomitant]
  10. FUROSEMIDE [Concomitant]
  11. LANOXIN [Concomitant]
  12. VITAMINS, OTHER COMBINATIONS [Concomitant]
  13. FEOSOL [Concomitant]
  14. ALISKIREN [Concomitant]

REACTIONS (6)
  - FATIGUE [None]
  - HUNGER [None]
  - HYPOTHYROIDISM [None]
  - NAIL DISORDER [None]
  - SOMNOLENCE [None]
  - WEIGHT INCREASED [None]
